FAERS Safety Report 25597180 (Version 1)
Quarter: 2025Q3

REPORT INFORMATION
  Report Type: Report from Study
  Country: AR (occurrence: AR)
  Receive Date: 20250723
  Receipt Date: 20250723
  Transmission Date: 20251020
  Serious: Yes (Hospitalization)
  Sender: BIOGEN
  Company Number: AR-BIOGEN-2025BI01317969

PATIENT
  Sex: Female

DRUGS (3)
  1. TYSABRI [Suspect]
     Active Substance: NATALIZUMAB
     Indication: Multiple sclerosis
     Route: 050
     Dates: start: 20140926, end: 202404
  2. TYSABRI [Suspect]
     Active Substance: NATALIZUMAB
     Indication: Multiple sclerosis
     Dosage: LAST DOSE 08 JUL 2025
     Route: 050
     Dates: start: 20240521
  3. LEVOTHYROXINE T4 [Concomitant]
     Indication: Product used for unknown indication
     Route: 050

REACTIONS (3)
  - Benign neoplasm of thyroid gland [Recovered/Resolved]
  - Neck pain [Recovered/Resolved]
  - Arthralgia [Recovered/Resolved]
